FAERS Safety Report 4582242-8 (Version None)
Quarter: 2005Q1

REPORT INFORMATION
  Report Type: 
  Country: None (occurrence: None)
  Receive Date: 20050119
  Receipt Date: 20041025
  Transmission Date: 20050727
  Serious: Yes (Other)
  Sender: FDA-Public Use
  Company Number: 2004EN000076

PATIENT
  Age: 52 Year
  Sex: Male
  Weight: 107.9561 kg

DRUGS (12)
  1. ABELCET [Suspect]
     Indication: RESPIRATORY MONILIASIS
     Dosage: 520 MG;QD;IV
     Route: 042
     Dates: start: 20040901, end: 20041023
  2. AMIKACIN [Concomitant]
  3. DOXYCYCLINE [Concomitant]
  4. ZYVOX [Concomitant]
  5. CEPHALOSPORINS AND RELATED SUBSTANCES [Concomitant]
  6. PREDNISONE [Concomitant]
  7. CELLCEPT [Concomitant]
  8. SYNTHROID [Concomitant]
  9. PROCRIT [Concomitant]
  10. INSULIN [Concomitant]
  11. NEURONTIN [Concomitant]
  12. CYCLOSPORINE [Concomitant]

REACTIONS (2)
  - CONVULSION [None]
  - ENCEPHALOPATHY [None]
